FAERS Safety Report 17168375 (Version 2)
Quarter: 2020Q1

REPORT INFORMATION
  Report Type: Spontaneous
  Country: PT (occurrence: PT)
  Receive Date: 20191218
  Receipt Date: 20200130
  Transmission Date: 20200409
  Serious: Yes (Hospitalization, Other)
  Sender: FDA-Public Use
  Company Number: PT-CIRCASSIA PHARMACEUTICALS INC.-2019PT011943

PATIENT
  Age: 65 Year
  Sex: Male

DRUGS (1)
  1. ACLIDINIUM + FORMOTEROL [Suspect]
     Active Substance: ACLIDINIUM BROMIDE\FORMOTEROL FUMARATE
     Indication: CHRONIC OBSTRUCTIVE PULMONARY DISEASE
     Dosage: 340MCG/12MCG
     Route: 055

REACTIONS (4)
  - Fatigue [Recovered/Resolved]
  - Drug dose omission by device [Recovered/Resolved]
  - Dyspnoea [Recovered/Resolved]
  - Device failure [Recovered/Resolved]

NARRATIVE: CASE EVENT DATE: 20191202
